FAERS Safety Report 5439298-X (Version None)
Quarter: 2007Q3

REPORT INFORMATION
  Report Type: 
  Country: None (occurrence: None)
  Receive Date: 20070831
  Receipt Date: 20070824
  Transmission Date: 20080115
  Serious: Yes (Death)
  Sender: FDA-Public Use
  Company Number: US-ELI_LILLY_AND_COMPANY-US200708005558

PATIENT
  Age: 44 Day
  Sex: Male

DRUGS (2)
  1. HUMATROPE [Suspect]
     Indication: DRUG USE FOR UNKNOWN INDICATION
     Dosage: UNK, UNKNOWN
     Dates: start: 20070801, end: 20070823
  2. CORTISOL [Concomitant]
     Indication: DRUG USE FOR UNKNOWN INDICATION
     Dosage: UNK, UNKNOWN
     Dates: start: 20070101, end: 20070101

REACTIONS (1)
  - DEHYDRATION [None]
